FAERS Safety Report 7649697-3 (Version None)
Quarter: 2011Q3

REPORT INFORMATION
  Report Type: 
  Country: None (occurrence: None)
  Receive Date: 20110727
  Receipt Date: 20110714
  Transmission Date: 20111222
  Serious: Yes (Hospitalization)
  Sender: FDA-Public Use
  Company Number: UTC-008222

PATIENT
  Age: 48 Year
  Sex: Female
  Weight: 127 kg

DRUGS (1)
  1. REMODULIN [Suspect]
     Indication: PULMONARY ARTERIAL HYPERTENSION
     Dosage: 63.36 UG/KG (0.044 UG/KG,1 IN 1 MIN),INTRAVENOUS
     Route: 042
     Dates: start: 20100503, end: 20110706

REACTIONS (5)
  - ERYTHEMA [None]
  - THERMAL BURN [None]
  - ACCIDENTAL EXPOSURE [None]
  - DERMATITIS CONTACT [None]
  - SCAR [None]
